FAERS Safety Report 16952910 (Version 6)
Quarter: 2021Q2

REPORT INFORMATION
  Report Type: Spontaneous
  Country: US (occurrence: US)
  Receive Date: 20191023
  Receipt Date: 20210504
  Transmission Date: 20210716
  Serious: Yes (Hospitalization, Other)
  Sender: FDA-Public Use
  Company Number: US-PFIZER INC-2019457306

PATIENT
  Age: 88 Year
  Sex: Female

DRUGS (2)
  1. XELJANZ [Suspect]
     Active Substance: TOFACITINIB CITRATE
     Dosage: 5 MG, 2X/DAY
     Route: 048
  2. XELJANZ [Suspect]
     Active Substance: TOFACITINIB CITRATE
     Dosage: 5 MG, UNK

REACTIONS (6)
  - Product prescribing issue [Unknown]
  - Parainfluenzae virus infection [Unknown]
  - Oral mucosal blistering [Unknown]
  - Oral infection [Unknown]
  - COVID-19 [Unknown]
  - Oral candidiasis [Unknown]

NARRATIVE: CASE EVENT DATE: 202011
